FAERS Safety Report 6715338-2 (Version None)
Quarter: 2010Q2

REPORT INFORMATION
  Report Type: 
  Country: None (occurrence: None)
  Receive Date: 20100507
  Receipt Date: 20100423
  Transmission Date: 20101027
  Serious: Yes (Hospitalization, Other)
  Sender: FDA-Public Use
  Company Number: US-ELI_LILLY_AND_COMPANY-US201003007637

PATIENT
  Sex: Female

DRUGS (11)
  1. FORTEO [Suspect]
     Indication: OSTEOPOROSIS
     Dosage: 20 UG, DAILY (1/D)
     Dates: start: 20080101
  2. CRESTOR [Concomitant]
  3. ZETIA [Concomitant]
  4. CENTRUM SILVER [Concomitant]
  5. VITAMIN D [Concomitant]
  6. NEXIUM [Concomitant]
  7. LACTULOSE [Concomitant]
  8. ATIVAN [Concomitant]
  9. MIRTAZAPINE [Concomitant]
  10. COLACE [Concomitant]
  11. FERROUS SULFATE TAB [Concomitant]

REACTIONS (5)
  - ANXIETY [None]
  - DISCOMFORT [None]
  - FALL [None]
  - MALAISE [None]
  - PATELLA FRACTURE [None]
